FAERS Safety Report 18824344 (Version 1)
Quarter: 2021Q1

REPORT INFORMATION
  Report Type: Spontaneous
  Country: US (occurrence: US)
  Receive Date: 20210201
  Receipt Date: 20210201
  Transmission Date: 20210419
  Serious: No
  Sender: FDA-Public Use
  Company Number: US-ABBVIE-20K-163-3277423-00

PATIENT
  Sex: Female

DRUGS (2)
  1. HUMIRA [Suspect]
     Active Substance: ADALIMUMAB
     Indication: CROHN^S DISEASE
     Dosage: PEN 1
     Route: 058
  2. HUMIRA [Suspect]
     Active Substance: ADALIMUMAB
     Dosage: PEN 2
     Route: 058

REACTIONS (5)
  - Frequent bowel movements [Unknown]
  - Illness [Unknown]
  - Injection site pain [Unknown]
  - Fracture [Unknown]
  - Device issue [Unknown]
